FAERS Safety Report 19066414 (Version 1)
Quarter: 2021Q1

REPORT INFORMATION
  Report Type: Spontaneous
  Country: FR (occurrence: FR)
  Receive Date: 20210328
  Receipt Date: 20210328
  Transmission Date: 20210420
  Serious: Yes (Life-Threatening)
  Sender: FDA-Public Use
  Company Number: FR-TEVA-2021-FR-1892978

PATIENT
  Age: 67 Year
  Sex: Male
  Weight: 85.5 kg

DRUGS (11)
  1. TRULICITY [Suspect]
     Active Substance: DULAGLUTIDE
     Indication: TYPE 2 DIABETES MELLITUS
     Dosage: UNIT DOSE: 0.5 ML
     Route: 048
     Dates: end: 20210105
  2. PANTOPRAZOLE MYLAN 40 MG, COMPRIME GASTRO?RESISTANT [Suspect]
     Active Substance: PANTOPRAZOLE SODIUM
     Indication: GASTRIC ULCER
     Dosage: UNIT DOSE: 1 DOSAGE FORM
     Route: 048
     Dates: end: 20210105
  3. SIMVASTATINE ACTAVIS 20 MG, COMPRIME PELLICULE SECABLE [Suspect]
     Active Substance: SIMVASTATIN
     Indication: HYPOLIPIDAEMIA
     Dosage: UNIT DOSE: 1 DOSAGE FORM
     Route: 048
     Dates: end: 20210105
  4. METFORMINE ARROW 500 MG, COMPRIME PELLICULE [Suspect]
     Active Substance: METFORMIN HYDROCHLORIDE
     Indication: TYPE 2 DIABETES MELLITUS
     Dosage: UNIT DOSE: 1 DOSAGE FORMS
     Route: 048
     Dates: end: 20210105
  5. XARELTO [Suspect]
     Active Substance: RIVAROXABAN
     Indication: CARDIAC FLUTTER
     Dosage: UNIT DOSE: 1 DOSAGE FORM
     Route: 048
     Dates: end: 20210105
  6. FUROSEMIDE TEVA 500 MG, COMPRIME SECABLE [Concomitant]
     Active Substance: FUROSEMIDE
     Dosage: SCORED
  7. BETAHISTINE (CHLORHYDRATE) [Suspect]
     Active Substance: BETAHISTINE HYDROCHLORIDE
     Indication: VERTIGO
     Dosage: UNIT DOSE: 24 MILLIGRAM
     Route: 048
     Dates: end: 20210105
  8. SPIRONOLACTONE ARROW [Suspect]
     Active Substance: SPIRONOLACTONE
     Indication: CARDIAC FAILURE
     Dosage: UNIT DOSE: 50 MILLIGRAM
     Route: 048
     Dates: end: 20210105
  9. ULTIBRO BREEZHALER [Concomitant]
     Active Substance: GLYCOPYRRONIUM\INDACATEROL
  10. ALLOPURINOL ARROW 100 MG, COMPRIME [Suspect]
     Active Substance: ALLOPURINOL
     Indication: GOUT
     Dosage: UNIT DOSE: 1 DOSAGE FORM
     Route: 048
     Dates: end: 20210105
  11. COLCHICINE OPOCALCIUM 1 MG, COMPRIME [Suspect]
     Active Substance: COLCHICINE
     Indication: GOUT
     Dosage: UNIT DOSE: 0.5 DOSAGE FORM
     Route: 048
     Dates: end: 20210105

REACTIONS (4)
  - Cardiac failure [Recovered/Resolved]
  - Hyponatraemia [Recovered/Resolved]
  - Acute kidney injury [Recovered/Resolved]
  - Lactic acidosis [Recovered/Resolved]

NARRATIVE: CASE EVENT DATE: 20210105
